FAERS Safety Report 4968868-8 (Version None)
Quarter: 2006Q2

REPORT INFORMATION
  Report Type: 
  Country: None (occurrence: None)
  Receive Date: 20060405
  Receipt Date: 20060323
  Transmission Date: 20061013
  Serious: Yes (Other)
  Sender: FDA-Public Use
  Company Number: 2006041923

PATIENT
  Sex: Female

DRUGS (3)
  1. ARTHROTEC [Suspect]
     Indication: ARTHRITIS
     Dosage: 225 MG (75 MG, 3 IN 1 D)
     Dates: end: 20060321
  2. POTASSIUM (POTASSIUM) [Concomitant]
  3. IMITREX [Concomitant]

REACTIONS (9)
  - ABDOMINAL DISTENSION [None]
  - ARTHRALGIA [None]
  - CONDITION AGGRAVATED [None]
  - EYE DISORDER [None]
  - HAEMATEMESIS [None]
  - INSOMNIA [None]
  - NEPHROLITHIASIS [None]
  - OEDEMA PERIPHERAL [None]
  - RENAL FAILURE [None]
